FAERS Safety Report 7950317-9 (Version None)
Quarter: 2011Q4

REPORT INFORMATION
  Report Type: 
  Country: None (occurrence: None)
  Receive Date: 20111130
  Receipt Date: 20111117
  Transmission Date: 20120403
  Serious: Yes (Other)
  Sender: FDA-Public Use
  Company Number: US-ELI_LILLY_AND_COMPANY-US201111006971

PATIENT
  Age: 60 Year
  Sex: Female

DRUGS (4)
  1. OXYCODONE HCL [Concomitant]
  2. OXYCONTIN [Concomitant]
  3. CYMBALTA [Suspect]
     Indication: DEPRESSION
     Dosage: UNK, UNKNOWN
  4. CYMBALTA [Suspect]
     Dosage: 60 MG, QD
     Dates: start: 20111117

REACTIONS (8)
  - ACCIDENT [None]
  - LUNG NEOPLASM MALIGNANT [None]
  - BLADDER CANCER [None]
  - OSTEOPOROSIS [None]
  - AMNESIA [None]
  - BONE CYST [None]
  - PRESYNCOPE [None]
  - SKIN CANCER [None]
